FAERS Safety Report 15526628 (Version 1)
Quarter: 2018Q4

REPORT INFORMATION
  Report Type: Spontaneous
  Country: FR (occurrence: FR)
  Receive Date: 20181018
  Receipt Date: 20181018
  Transmission Date: 20190205
  Serious: Yes (Hospitalization)
  Sender: FDA-Public Use
  Company Number: FR-TEVA-2018-FR-965811

PATIENT
  Age: 65 Year
  Sex: Female

DRUGS (4)
  1. ALLOPURINOL EG 100 MG, COMPRIM? [Suspect]
     Active Substance: ALLOPURINOL
     Indication: OSTEOARTHRITIS
     Dosage: 100 MILLIGRAM DAILY;
     Route: 048
     Dates: start: 20180618, end: 20180628
  2. TEMERITDUO 5 MG/25 MG, COMPRIM? PELLICUL? [Concomitant]
     Active Substance: HYDROCHLOROTHIAZIDE\NEBIVOLOL HYDROCHLORIDE
  3. EZETROL 10 MG, COMPRIM? [Concomitant]
     Active Substance: EZETIMIBE
  4. CELECOXIB. [Suspect]
     Active Substance: CELECOXIB
     Indication: OSTEOARTHRITIS
     Dosage: 200 MILLIGRAM DAILY;
     Route: 048
     Dates: start: 20180618, end: 20180628

REACTIONS (4)
  - Face oedema [Recovered/Resolved]
  - Pyrexia [Recovered/Resolved]
  - Rash maculo-papular [Recovered/Resolved]
  - Eosinophilia [Recovered/Resolved]

NARRATIVE: CASE EVENT DATE: 20180627
